FAERS Safety Report 6264154-7 (Version None)
Quarter: 2009Q3

REPORT INFORMATION
  Report Type: 
  Country: None (occurrence: None)
  Receive Date: 20090710
  Receipt Date: 20090629
  Transmission Date: 20100115
  Serious: Yes (Other)
  Sender: FDA-Public Use
  Company Number: US-PFIZER INC-2009220865

PATIENT
  Sex: Female
  Weight: 79.36 kg

DRUGS (6)
  1. VIAGRA [Suspect]
     Indication: PERIPHERAL VASCULAR DISORDER
     Dosage: 50 MG, 2X/DAY
     Dates: start: 20090501
  2. CYMBALTA [Concomitant]
     Dosage: UNK
  3. ESTRACE [Concomitant]
     Dosage: UNK
  4. MOBIC [Concomitant]
     Dosage: UNK
  5. PLAQUENIL [Concomitant]
     Dosage: UNK
  6. WELLBUTRIN [Concomitant]
     Dosage: UNK

REACTIONS (2)
  - RASH PUSTULAR [None]
  - WOUND [None]
